FAERS Safety Report 9679946 (Version 2)
Quarter: 2013Q4

REPORT INFORMATION
  Report Type: Report from Study
  Country: CA (occurrence: CA)
  Receive Date: 20131110
  Receipt Date: 20131110
  Transmission Date: 20140711
  Serious: Yes (Hospitalization)
  Sender: FDA-Public Use
  Company Number: CA-ROCHE-1155957

PATIENT
  Age: 46 Year
  Sex: Female
  Weight: 69.1 kg

DRUGS (13)
  1. TRASTUZUMAB EMTANSINE [Suspect]
     Indication: BREAST CANCER
     Dosage: LAST DOSE PRIOR TO SAE:23/OCT/2012, LAST STUDY DOSE TAKEN 280 MG
     Route: 042
     Dates: start: 20121023
  2. MORPHINE SR [Concomitant]
     Indication: BONE PAIN
     Route: 065
     Dates: start: 20120528
  3. DEXAMETHASONE [Concomitant]
     Indication: BONE PAIN
     Route: 065
     Dates: start: 20120524, end: 20121017
  4. FUROSEMIDE [Concomitant]
     Indication: LOCAL SWELLING
     Route: 065
     Dates: start: 20120528, end: 20121110
  5. LORAZEPAM [Concomitant]
     Indication: ANXIETY
     Route: 065
     Dates: start: 20110815
  6. SALBUTAMOL INHALER [Concomitant]
     Indication: DYSPNOEA
     Route: 065
     Dates: start: 1978
  7. CITALOPRAM [Concomitant]
     Indication: ANXIETY
     Route: 065
     Dates: start: 20120525, end: 20121110
  8. PANTOPRAZOLE [Concomitant]
     Indication: GASTROOESOPHAGEAL REFLUX DISEASE
     Route: 065
     Dates: start: 20120525, end: 20121110
  9. CALCIUM CARBONATE [Concomitant]
     Indication: MINERAL SUPPLEMENTATION
     Route: 065
     Dates: start: 20110815, end: 20121110
  10. STATEX (CANADA) [Concomitant]
     Indication: BREAKTHROUGH PAIN
     Route: 065
     Dates: start: 20111208
  11. ONDANSETRON [Concomitant]
     Indication: PROPHYLAXIS OF NAUSEA AND VOMITING
     Route: 065
     Dates: start: 20121023, end: 20121025
  12. RANITIDINE [Concomitant]
     Indication: GASTROOESOPHAGEAL REFLUX DISEASE
     Route: 065
     Dates: start: 20121109, end: 20121111
  13. CIPRALEX [Concomitant]
     Indication: ANXIETY
     Route: 065
     Dates: start: 20121111, end: 20121111

REACTIONS (1)
  - Gastroenteritis [Recovered/Resolved]
